FAERS Safety Report 10008433 (Version 2)
Quarter: 2014Q1

REPORT INFORMATION
  Report Type: Report from Study
  Country: US (occurrence: US)
  Receive Date: 20140313
  Receipt Date: 20140321
  Transmission Date: 20141002
  Serious: Yes (Life-Threatening, Other)
  Sender: FDA-Public Use
  Company Number: US-JNJFOC-20140307432

PATIENT
  Age: 63 Year
  Sex: Male
  Weight: 84 kg

DRUGS (13)
  1. IBRUTINIB [Suspect]
     Route: 048
  2. IBRUTINIB [Suspect]
     Indication: MANTLE CELL LYMPHOMA
     Route: 048
     Dates: start: 20130906, end: 20131121
  3. NEUPOGEN [Concomitant]
  4. MORPHINE SULFATE [Concomitant]
     Indication: PAIN
  5. NORCO [Concomitant]
     Indication: PAIN
  6. LANSOPRAZOLE [Concomitant]
     Indication: GASTROOESOPHAGEAL REFLUX DISEASE
  7. SYNTHROID [Concomitant]
  8. AUGMENTIN [Concomitant]
     Indication: SINUSITIS
     Route: 048
  9. ZOFRAN [Concomitant]
     Indication: VOMITING
  10. ZOFRAN [Concomitant]
     Indication: NAUSEA
  11. PSEUDOEPHEDRINE [Concomitant]
     Indication: NASAL CONGESTION
  12. DOCUSATE/SENNA [Concomitant]
  13. ACETAMINOPHEN [Concomitant]

REACTIONS (1)
  - Leukocytosis [Recovering/Resolving]
